FAERS Safety Report 6145030-7 (Version None)
Quarter: 2009Q2

REPORT INFORMATION
  Report Type: 
  Country: None (occurrence: None)
  Receive Date: 20090406
  Receipt Date: 20090327
  Transmission Date: 20091009
  Serious: Yes (Hospitalization)
  Sender: FDA-Public Use
  Company Number: JP-BRISTOL-MYERS SQUIBB COMPANY-14564744

PATIENT
  Age: 57 Year
  Sex: Male

DRUGS (5)
  1. STOCRIN CAPS 200 MG [Suspect]
     Indication: HIV INFECTION
     Route: 048
     Dates: start: 20081205, end: 20081223
  2. TRUVADA [Suspect]
     Indication: HIV INFECTION
     Dosage: FORMULATION IS TABLET
     Route: 048
     Dates: start: 20081205, end: 20081223
  3. CALONAL [Concomitant]
     Indication: PYREXIA
     Dosage: FORMULATION IS TABLET
     Route: 048
     Dates: start: 20081119, end: 20081219
  4. MEDICON [Concomitant]
     Indication: COUGH
     Dosage: FORMULATION TABLET.
     Route: 048
     Dates: start: 20081204, end: 20081226
  5. CEFOTIAM HCL [Concomitant]
     Indication: URINARY TRACT INFECTION
     Dosage: FORMULATION INJECTION
     Route: 042
     Dates: start: 20081216, end: 20081222

REACTIONS (3)
  - BLOOD CREATININE INCREASED [None]
  - PROTEINURIA [None]
  - RENAL FAILURE ACUTE [None]
